FAERS Safety Report 13424074 (Version 2)
Quarter: 2017Q2

REPORT INFORMATION
  Report Type: Spontaneous
  Country: VE (occurrence: VE)
  Receive Date: 20170410
  Receipt Date: 20170508
  Transmission Date: 20170830
  Serious: Yes (Hospitalization)
  Sender: FDA-Public Use
  Company Number: VE-UCBSA-2017013442

PATIENT
  Age: 12 Year
  Sex: Male
  Weight: 32 kg

DRUGS (2)
  1. TRILEPTAL [Concomitant]
     Active Substance: OXCARBAZEPINE
     Indication: PRODUCT USED FOR UNKNOWN INDICATION
     Dosage: 600 MG
  2. KEPPRA [Suspect]
     Active Substance: LEVETIRACETAM
     Indication: SEIZURE
     Dosage: 1/2 TABLET IN THE MORNING AND1/2 OF TABLET AT NIGHT
     Route: 048
     Dates: start: 201604

REACTIONS (3)
  - Seizure [Recovering/Resolving]
  - Epilepsy [Recovering/Resolving]
  - Drug dose omission [Unknown]
